FAERS Safety Report 4649178-5 (Version None)
Quarter: 2005Q2

REPORT INFORMATION
  Report Type: 
  Country: None (occurrence: None)
  Receive Date: 20050427
  Receipt Date: 20050411
  Transmission Date: 20051028
  Serious: Yes (Hospitalization, Other)
  Sender: FDA-Public Use
  Company Number: US_0404102182

PATIENT
  Age: 69 Year
  Sex: Female

DRUGS (7)
  1. HUMALOG [Suspect]
     Indication: DIABETES MELLITUS
     Dosage: 70 U DAY
     Dates: start: 20020101
  2. HUMALOG [Suspect]
     Indication: DIABETES MELLITUS
  3. HUMULIN 70/30 [Suspect]
     Indication: DIABETES MELLITUS
     Dates: start: 19800101
  4. WARFARIN [Concomitant]
  5. FLONASE [Concomitant]
  6. ALPRAZOLAM [Concomitant]
  7. METOPROLOL TARTRATE [Concomitant]

REACTIONS (9)
  - ATRIAL FIBRILLATION [None]
  - BLOOD GLUCOSE DECREASED [None]
  - EYE HAEMORRHAGE [None]
  - FALL [None]
  - INTERVERTEBRAL DISC DISORDER [None]
  - LOSS OF CONSCIOUSNESS [None]
  - PHARMACEUTICAL PRODUCT COMPLAINT [None]
  - UTERINE CANCER [None]
  - WEIGHT INCREASED [None]
